FAERS Safety Report 11850271 (Version 1)
Quarter: 2015Q4

REPORT INFORMATION
  Report Type: Spontaneous
  Country: MY (occurrence: MY)
  Receive Date: 20151218
  Receipt Date: 20151218
  Transmission Date: 20160305
  Serious: Yes (Other)
  Sender: FDA-Public Use
  Company Number: MY-ABBVIE-15P-101-1522937-00

PATIENT
  Sex: Female

DRUGS (1)
  1. KLACID GRANULES 125MG/5ML [Suspect]
     Active Substance: CLARITHROMYCIN
     Indication: LUNG INFECTION
     Dosage: FORM STRENGTH:125MG/5ML
     Route: 065

REACTIONS (1)
  - Contusion [Recovered/Resolved]
